FAERS Safety Report 14892547 (Version 1)
Quarter: 2018Q2

REPORT INFORMATION
  Report Type: Spontaneous
  Country: US (occurrence: US)
  Receive Date: 20180426
  Receipt Date: 20180426
  Transmission Date: 20180711
  Serious: Yes (Other)
  Sender: FDA-Public Use
  Company Number: None

PATIENT
  Age: 28 Year
  Sex: Male
  Weight: 112.5 kg

DRUGS (5)
  1. CYCLOBENZAPR [Concomitant]
     Active Substance: CYCLOBENZAPRINE
  2. FIXER VITAMINS [Concomitant]
  3. NAPROXEN. [Suspect]
     Active Substance: NAPROXEN
     Indication: INFLAMMATION
  4. MULTI VITAMIN [Concomitant]
     Active Substance: VITAMINS
  5. NAPROXEN. [Suspect]
     Active Substance: NAPROXEN
     Indication: PAIN
     Dosage: ?          QUANTITY:1 TABLET(S);?
     Route: 048
     Dates: start: 20180404, end: 20180426

REACTIONS (5)
  - Discoloured vomit [None]
  - Abdominal pain upper [None]
  - Drug ineffective [None]
  - Dyspepsia [None]
  - Malaise [None]

NARRATIVE: CASE EVENT DATE: 20180404
